FAERS Safety Report 8223310-9 (Version None)
Quarter: 2012Q1

REPORT INFORMATION
  Report Type: 
  Country: None (occurrence: None)
  Receive Date: 20120321
  Receipt Date: 20120308
  Transmission Date: 20120608
  Serious: Yes (Other)
  Sender: FDA-Public Use
  Company Number: US-ROCHE-786733

PATIENT
  Sex: Female
  Weight: 82.174 kg

DRUGS (1)
  1. ACCUTANE [Suspect]
     Indication: ACNE
     Route: 048
     Dates: start: 19980922, end: 19981218

REACTIONS (8)
  - INFLAMMATORY BOWEL DISEASE [None]
  - INJURY [None]
  - DRY SKIN [None]
  - IRRITABLE BOWEL SYNDROME [None]
  - LIP DRY [None]
  - HEADACHE [None]
  - COLITIS [None]
  - CROHN'S DISEASE [None]
